FAERS Safety Report 17833201 (Version 1)
Quarter: 2020Q2

REPORT INFORMATION
  Report Type: Spontaneous
  Country: US (occurrence: US)
  Receive Date: 20200528
  Receipt Date: 20200528
  Transmission Date: 20200714
  Serious: Yes (Other)
  Sender: FDA-Public Use
  Company Number: US-STRIDES ARCOLAB LIMITED-2020SP001365

PATIENT
  Age: 65 Year
  Sex: Female

DRUGS (12)
  1. VANCOMYCIN [Suspect]
     Active Substance: VANCOMYCIN
     Indication: NECROTISING FASCIITIS
     Dosage: UNK
     Route: 065
  2. VANCOMYCIN [Suspect]
     Active Substance: VANCOMYCIN
     Indication: BETA HAEMOLYTIC STREPTOCOCCAL INFECTION
  3. CLINDAMYCIN. [Suspect]
     Active Substance: CLINDAMYCIN
     Indication: OSTEOMYELITIS
  4. CLINDAMYCIN. [Suspect]
     Active Substance: CLINDAMYCIN
     Indication: NECROTISING FASCIITIS
     Dosage: UNK
     Route: 065
  5. CLINDAMYCIN. [Suspect]
     Active Substance: CLINDAMYCIN
     Indication: ANTIBIOTIC THERAPY
  6. CLINDAMYCIN. [Suspect]
     Active Substance: CLINDAMYCIN
     Indication: BETA HAEMOLYTIC STREPTOCOCCAL INFECTION
  7. MEROPENEM. [Suspect]
     Active Substance: MEROPENEM
     Indication: OSTEOMYELITIS
  8. VANCOMYCIN [Suspect]
     Active Substance: VANCOMYCIN
     Indication: OSTEOMYELITIS
  9. MEROPENEM. [Suspect]
     Active Substance: MEROPENEM
     Indication: BETA HAEMOLYTIC STREPTOCOCCAL INFECTION
  10. VANCOMYCIN [Suspect]
     Active Substance: VANCOMYCIN
     Indication: ANTIBIOTIC THERAPY
  11. MEROPENEM. [Suspect]
     Active Substance: MEROPENEM
     Indication: ANTIBIOTIC THERAPY
  12. MEROPENEM. [Suspect]
     Active Substance: MEROPENEM
     Indication: NECROTISING FASCIITIS
     Dosage: UNK
     Route: 065

REACTIONS (1)
  - Drug ineffective for unapproved indication [Unknown]
